FAERS Safety Report 16439385 (Version 1)
Quarter: 2019Q2

REPORT INFORMATION
  Report Type: Spontaneous
  Country: US (occurrence: US)
  Receive Date: 20190507
  Receipt Date: 20190507
  Transmission Date: 20190711
  Serious: Yes (Hospitalization)
  Sender: FDA-Public Use
  Company Number: None

PATIENT
  Age: 6 Year
  Sex: Male

DRUGS (17)
  1. FUROSEMIDE. [Concomitant]
     Active Substance: FUROSEMIDE
  2. ALVESCO HFA [Concomitant]
  3. ALBUTEROL HFA [Concomitant]
     Active Substance: ALBUTEROL SULFATE
  4. NEOCATE SPLASH [Concomitant]
  5. ADRENACLICK [Concomitant]
     Active Substance: EPINEPHRINE
  6. SPIRONOLACTONE. [Concomitant]
     Active Substance: SPIRONOLACTONE
  7. ALBUTEROL NEB SOLN [Concomitant]
  8. NYSTATIN ORAL SUSP [Concomitant]
  9. CETIRIZINE [Concomitant]
     Active Substance: CETIRIZINE HYDROCHLORIDE
  10. UPTREVI [Concomitant]
  11. NEOCATE JUNIOR [Concomitant]
  12. OPSUMIT [Suspect]
     Active Substance: MACITENTAN
     Indication: PULMONARY ARTERIAL HYPERTENSION
     Route: 048
     Dates: start: 201704
  13. SILDENAFIL. [Concomitant]
     Active Substance: SILDENAFIL
  14. SODIUM CHLORIDE INHL NEB SOLN [Concomitant]
  15. WARFARIN [Concomitant]
     Active Substance: WARFARIN
  16. BUDESONIDE. [Concomitant]
     Active Substance: BUDESONIDE
  17. FLONASE [Concomitant]
     Active Substance: FLUTICASONE PROPIONATE

REACTIONS (3)
  - Biopsy liver [None]
  - Catheterisation cardiac [None]
  - Oesophagogastroduodenoscopy [None]

NARRATIVE: CASE EVENT DATE: 20190414
